FAERS Safety Report 4415419-2 (Version None)
Quarter: 2004Q2

REPORT INFORMATION
  Report Type: 
  Country: None (occurrence: None)
  Receive Date: 20040630
  Receipt Date: 20031222
  Transmission Date: 20050107
  Serious: Yes (Other)
  Sender: FDA-Public Use
  Company Number: 2003041532

PATIENT
  Age: 6 Year
  Sex: Male

DRUGS (6)
  1. ZOLOFT [Suspect]
     Indication: DEPRESSION
     Dosage: 25 MG (DAILY), ORAL
     Route: 048
     Dates: start: 20030616, end: 20030917
  2. ZOLOFT [Suspect]
     Indication: DYSPHORIA
     Dosage: 25 MG (DAILY), ORAL
     Route: 048
     Dates: start: 20030616, end: 20030917
  3. METHYLPHENIDATE HCL [Concomitant]
  4. GUANFACINE HYDROCHLORIDE (GUANFACINE HYDROCHLORIDE) [Concomitant]
  5. CLONIDINE [Concomitant]
  6. RISPERDAL [Concomitant]

REACTIONS (1)
  - HALLUCINATION, AUDITORY [None]
